FAERS Safety Report 6556582-7 (Version None)
Quarter: 2010Q1

REPORT INFORMATION
  Report Type: 
  Country: None (occurrence: None)
  Receive Date: 20100128
  Receipt Date: 20100118
  Transmission Date: 20100710
  Serious: Yes (Hospitalization, Other)
  Sender: FDA-Public Use
  Company Number: SE-JNJFOC-20090603799

PATIENT
  Age: 16 Year
  Sex: Female

DRUGS (6)
  1. REMICADE [Suspect]
     Indication: COLITIS ULCERATIVE
     Route: 042
  2. REMICADE [Suspect]
     Dosage: RECEIVED 2 TREATMENTS WITHIN A TIME PERIOD OF 2 WEEKS.
     Route: 042
  3. PREDNISOLONE [Concomitant]
     Route: 048
  4. FLAGYL [Concomitant]
     Route: 048
  5. ASACOL [Concomitant]
     Route: 054
  6. FOLACIN [Concomitant]
     Route: 048

REACTIONS (2)
  - CYTOMEGALOVIRUS COLITIS [None]
  - LISTERIA SEPSIS [None]
